FAERS Safety Report 14403528 (Version 1)
Quarter: 2018Q1

REPORT INFORMATION
  Report Type: Spontaneous
  Country: US (occurrence: US)
  Receive Date: 20180116
  Receipt Date: 20180116
  Transmission Date: 20180509
  Serious: Yes (Death)
  Sender: FDA-Public Use
  Company Number: None

PATIENT
  Age: 73 Year
  Sex: Female

DRUGS (7)
  1. DEXAMETHASONE. [Concomitant]
     Active Substance: DEXAMETHASONE
  2. SPIRONOLACT [Suspect]
     Active Substance: SPIRONOLACTONE
  3. PREDNISONE. [Concomitant]
     Active Substance: PREDNISONE
  4. ONDANSETRON [Concomitant]
     Active Substance: ONDANSETRON
  5. IBRANCE [Suspect]
     Active Substance: PALBOCICLIB
     Indication: BREAST CANCER FEMALE
     Dosage: 1 CAPSULE DAILY BY MOUTH
     Route: 048
  6. METOCLOPRAM [Concomitant]
     Active Substance: METOCLOPRAMIDE
  7. CHLORIDE [Concomitant]
     Active Substance: CHLORIDE ION

REACTIONS (1)
  - Death [None]

NARRATIVE: CASE EVENT DATE: 20180108
